FAERS Safety Report 4378534-8 (Version None)
Quarter: 2004Q2

REPORT INFORMATION
  Report Type: 
  Country: None (occurrence: None)
  Receive Date: 20040616
  Receipt Date: 20040615
  Transmission Date: 20050107
  Serious: Yes (Other)
  Sender: FDA-Public Use
  Company Number: US-GLAXOSMITHKLINE-A0514689A

PATIENT

DRUGS (7)
  1. WELLBUTRIN [Suspect]
     Indication: ILL-DEFINED DISORDER
     Route: 048
  2. HYDROCHLOROTHIAZIDE [Concomitant]
  3. KLONOPIN [Concomitant]
  4. SEROQUEL [Concomitant]
  5. PROTONIX [Concomitant]
  6. BENTYL [Concomitant]
  7. SINGULAIR [Concomitant]

REACTIONS (1)
  - FAECAL INCONTINENCE [None]
